FAERS Safety Report 6103233-1 (Version None)
Quarter: 2009Q1

REPORT INFORMATION
  Report Type: 
  Country: None (occurrence: None)
  Receive Date: 20090305
  Receipt Date: 20090220
  Transmission Date: 20090719
  Serious: Yes (Other)
  Sender: FDA-Public Use
  Company Number: US-PFIZER INC-2009175768

PATIENT
  Sex: Female
  Weight: 90.718 kg

DRUGS (2)
  1. CHANTIX [Suspect]
     Indication: SMOKING CESSATION THERAPY
  2. ADIPEX [Concomitant]
     Dosage: UNK

REACTIONS (1)
  - LOSS OF CONSCIOUSNESS [None]
